FAERS Safety Report 6097356-3 (Version None)
Quarter: 2009Q1

REPORT INFORMATION
  Report Type: 
  Country: None (occurrence: None)
  Receive Date: 20090226
  Receipt Date: 20090226
  Transmission Date: 20090719
  Serious: No
  Sender: FDA-Public Use
  Company Number: None

PATIENT
  Age: 54 Year
  Sex: Male
  Weight: 81.6475 kg

DRUGS (1)
  1. MITOMYCIN [Suspect]
     Indication: BLADDER CANCER
     Dosage: ONCE INTERVESICAL
     Route: 043
     Dates: start: 20081211, end: 20081211

REACTIONS (6)
  - ABDOMINAL PAIN [None]
  - DYSURIA [None]
  - PAIN [None]
  - PENILE PAIN [None]
  - POLLAKIURIA [None]
  - SCAR [None]
